FAERS Safety Report 15854418 (Version 1)
Quarter: 2019Q1

REPORT INFORMATION
  Report Type: Spontaneous
  Country: US (occurrence: US)
  Receive Date: 20190122
  Receipt Date: 20190122
  Transmission Date: 20190417
  Serious: No
  Sender: FDA-Public Use
  Company Number: US-AMGEN-USASP2019008347

PATIENT
  Sex: Female

DRUGS (1)
  1. PROCRIT [Suspect]
     Active Substance: ERYTHROPOIETIN
     Indication: PRODUCT USED FOR UNKNOWN INDICATION
     Dosage: UNK (10000 UNIT/ML)
     Route: 030

REACTIONS (3)
  - Asthenia [Not Recovered/Not Resolved]
  - Incorrect route of product administration [Unknown]
  - Fatigue [Not Recovered/Not Resolved]
